FAERS Safety Report 6637736-8 (Version None)
Quarter: 2010Q1

REPORT INFORMATION
  Report Type: 
  Country: None (occurrence: None)
  Receive Date: 20100315
  Receipt Date: 20100315
  Transmission Date: 20100710
  Serious: Yes (Life-Threatening, Disabling, Other)
  Sender: FDA-Public Use
  Company Number: None

PATIENT
  Age: 18 Year
  Sex: Male
  Weight: 56.6996 kg

DRUGS (1)
  1. LEXAPRO [Suspect]
     Indication: GENERALISED ANXIETY DISORDER
     Dosage: LEXAPRO /1 TAB/10MG Q DAY PO
     Route: 048
     Dates: start: 20091222, end: 20100105

REACTIONS (7)
  - DISSOCIATION [None]
  - HYPERSOMNIA [None]
  - INCORRECT DOSE ADMINISTERED [None]
  - INTENTIONAL SELF-INJURY [None]
  - LIVER DISORDER [None]
  - SUICIDE ATTEMPT [None]
  - VOMITING [None]
